FAERS Safety Report 16082430 (Version 1)
Quarter: 2019Q1

REPORT INFORMATION
  Report Type: Spontaneous
  Country: IN (occurrence: IN)
  Receive Date: 20190318
  Receipt Date: 20190318
  Transmission Date: 20190418
  Serious: No
  Sender: FDA-Public Use
  Company Number: IN-LUPIN LIMITED-2018-04414

PATIENT
  Age: 19 Year
  Sex: Female

DRUGS (4)
  1. MULTIPREX [Concomitant]
     Indication: PRODUCT USED FOR UNKNOWN INDICATION
     Dosage: 1 DF, QD, IN THE MORNING
     Route: 048
     Dates: start: 20180606
  2. XIMECEFF TABLET [Suspect]
     Active Substance: CEFIXIME
     Indication: TYPHOID FEVER
     Dosage: 1 DF, BID
     Route: 048
     Dates: start: 20180606
  3. NOBEL-PLUS [Concomitant]
     Indication: PRODUCT USED FOR UNKNOWN INDICATION
     Dosage: 1 DF, TWICE A DAY
     Route: 048
     Dates: start: 20180606
  4. LIVOMYN [Concomitant]
     Indication: PRODUCT USED FOR UNKNOWN INDICATION
     Dosage: 1 DF, TWICE A DAY
     Route: 048
     Dates: start: 20180606

REACTIONS (2)
  - Flatulence [Not Recovered/Not Resolved]
  - Vomiting [Not Recovered/Not Resolved]

NARRATIVE: CASE EVENT DATE: 20180606
